FAERS Safety Report 4714190-4 (Version None)
Quarter: 2005Q3

REPORT INFORMATION
  Report Type: 
  Country: None (occurrence: None)
  Receive Date: 20050713
  Receipt Date: 20050713
  Transmission Date: 20060218
  Serious: Yes (Hospitalization, Other)
  Sender: FDA-Public Use
  Company Number: None

PATIENT
  Sex: Female
  Weight: 69.6 kg

DRUGS (3)
  1. CYTARABINE [Suspect]
     Indication: ACUTE MYELOID LEUKAEMIA
     Dosage: 900 MG
     Dates: start: 20050629, end: 20050703
  2. DAUNORUBICIN HCL [Suspect]
  3. ZOSUQUIDAR [Suspect]

REACTIONS (2)
  - LUNG INFILTRATION [None]
  - PULMONARY HAEMORRHAGE [None]
